FAERS Safety Report 24976560 (Version 3)
Quarter: 2025Q2

REPORT INFORMATION
  Report Type: Spontaneous
  Country: JP (occurrence: JP)
  Receive Date: 20250217
  Receipt Date: 20250617
  Transmission Date: 20250716
  Serious: Yes (Death)
  Sender: ASTELLAS
  Company Number: JP-ASTELLAS-2025-AER-008872

PATIENT
  Age: 61 Year
  Sex: Male

DRUGS (2)
  1. PADCEV [Suspect]
     Active Substance: ENFORTUMAB VEDOTIN-EJFV
     Indication: Ureteric cancer
     Route: 065
  2. PEMBROLIZUMAB [Concomitant]
     Active Substance: PEMBROLIZUMAB
     Indication: Ureteric cancer
     Route: 065

REACTIONS (4)
  - Eastern Cooperative Oncology Group performance status worsened [Fatal]
  - Taste disorder [Unknown]
  - Decreased appetite [Unknown]
  - Alopecia [Unknown]
